FAERS Safety Report 5479276-8 (Version None)
Quarter: 2007Q4

REPORT INFORMATION
  Report Type: 
  Country: None (occurrence: None)
  Receive Date: 20071008
  Receipt Date: 20071001
  Transmission Date: 20080405
  Serious: Yes (Hospitalization)
  Sender: FDA-Public Use
  Company Number: FR-BRISTOL-MYERS SQUIBB COMPANY-13924105

PATIENT
  Age: 84 Year
  Sex: Female

DRUGS (10)
  1. ELISOR [Suspect]
     Dates: start: 20070822, end: 20070901
  2. FUCIDINE [Suspect]
     Dates: start: 20070822, end: 20070901
  3. ALDACTAZIDE [Suspect]
     Dates: end: 20070904
  4. KARDEGIC [Suspect]
     Dates: end: 20070903
  5. INEXIUM [Concomitant]
  6. TANGANIL [Concomitant]
  7. STABLON [Concomitant]
  8. ACETAMINOPHEN [Concomitant]
  9. FORLAX [Concomitant]
  10. GINKOR [Concomitant]

REACTIONS (3)
  - PURPURA [None]
  - SPONTANEOUS HAEMATOMA [None]
  - THROMBOCYTOPENIA [None]
